FAERS Safety Report 17402640 (Version 1)
Quarter: 2020Q1

REPORT INFORMATION
  Report Type: Spontaneous
  Country: US (occurrence: US)
  Receive Date: 20200210
  Receipt Date: 20200210
  Transmission Date: 20200409
  Serious: Yes (Death)
  Sender: FDA-Public Use
  Company Number: None

PATIENT
  Sex: Male

DRUGS (5)
  1. TEMOZOLOMIDE. [Suspect]
     Active Substance: TEMOZOLOMIDE
     Indication: BRAIN NEOPLASM MALIGNANT
     Dosage: ?          OTHER FREQUENCY:QDX5D EVERY 28D;?
     Route: 048
     Dates: start: 20190927
  2. CLOBAZAM. [Concomitant]
     Active Substance: CLOBAZAM
  3. LEVETIRACETA [Concomitant]
  4. OXYCARBAZEPIN [Concomitant]
  5. TADALAFIL. [Concomitant]
     Active Substance: TADALAFIL

REACTIONS (1)
  - Death [None]
